FAERS Safety Report 9296692 (Version 2)
Quarter: 2013Q3

REPORT INFORMATION
  Report Type: Spontaneous
  Country: US (occurrence: None)
  Receive Date: 20130515
  Receipt Date: 20130705
  Transmission Date: 20140515
  Serious: Yes (Other)
  Sender: FDA-Public Use
  Company Number: 2013P1004897

PATIENT
  Age: 7 Day
  Sex: Female
  Weight: 5.9 kg

DRUGS (1)
  1. CAVAN-EC SOD DHA PRENATAL VITAMIN [Suspect]
     Indication: PRENATAL CARE
     Route: 048
     Dates: start: 201206

REACTIONS (6)
  - Haematochezia [None]
  - Hypersensitivity [None]
  - Exposure during breast feeding [None]
  - Vomiting [None]
  - Ill-defined disorder [None]
  - Mucous stools [None]
